FAERS Safety Report 8851120 (Version 11)
Quarter: 2014Q4

REPORT INFORMATION
  Report Type: Report from Study
  Country: CA (occurrence: CA)
  Receive Date: 20121019
  Receipt Date: 20141015
  Transmission Date: 20150529
  Serious: Yes (Hospitalization, Other)
  Sender: FDA-Public Use
  Company Number: PHHY2012CA017740

PATIENT
  Age: 67 Year
  Sex: Male

DRUGS (1)
  1. SANDOSTATIN LAR DEPOT [Suspect]
     Active Substance: OCTREOTIDE ACETATE
     Indication: NEUROENDOCRINE TUMOUR
     Dosage: 20 MG, ONCE A MONTH
     Route: 030
     Dates: start: 20111128

REACTIONS (13)
  - Erythema [Unknown]
  - Large intestinal stenosis [Not Recovered/Not Resolved]
  - Skin lesion [Recovered/Resolved]
  - Gait disturbance [Unknown]
  - Anxiety [Unknown]
  - Malaise [Unknown]
  - Peripheral swelling [Unknown]
  - Drug ineffective [Unknown]
  - Oedema peripheral [Recovering/Resolving]
  - Apathy [Unknown]
  - Irritable bowel syndrome [Not Recovered/Not Resolved]
  - Diarrhoea [Not Recovered/Not Resolved]
  - Blood pressure systolic increased [Unknown]

NARRATIVE: CASE EVENT DATE: 20121005
